FAERS Safety Report 6043026-7 (Version None)
Quarter: 2009Q1

REPORT INFORMATION
  Report Type: 
  Country: None (occurrence: None)
  Receive Date: 20090119
  Receipt Date: 20090106
  Transmission Date: 20090719
  Serious: Yes (Hospitalization, Other)
  Sender: FDA-Public Use
  Company Number: US-ELI_LILLY_AND_COMPANY-US200810005620

PATIENT
  Age: 45 Year
  Sex: Female

DRUGS (11)
  1. FORTEO [Suspect]
     Indication: OSTEOPOROSIS
     Dosage: 20 UG, DAILY (1/D)
     Dates: start: 20020101, end: 20030101
  2. FORTEO [Suspect]
     Dosage: 20 UG, DAILY (1/D)
     Dates: start: 20080912, end: 20081016
  3. CALTRATE + D [Concomitant]
     Dosage: 600, 2/D
  4. ALBUTEROL [Concomitant]
     Dosage: PUFF
  5. FOLIC ACID [Concomitant]
  6. LANSOPRAZOLE [Concomitant]
  7. MULTI-VITAMIN [Concomitant]
  8. TRIAMCINOLONE [Concomitant]
  9. COUMADIN [Concomitant]
  10. ACTONEL [Concomitant]
     Dates: start: 20040101, end: 20080101
  11. GLUCOCORTICOIDS [Concomitant]
     Indication: JUVENILE ARTHRITIS
     Dosage: TAKEN FOR MOST OF HER LIFE

REACTIONS (2)
  - HYPERCALCAEMIA [None]
  - MULTIPLE MYELOMA [None]
